FAERS Safety Report 18227453 (Version 1)
Quarter: 2020Q3

REPORT INFORMATION
  Report Type: Spontaneous
  Country: US (occurrence: US)
  Receive Date: 20200903
  Receipt Date: 20200903
  Transmission Date: 20201103
  Serious: No
  Sender: FDA-Public Use
  Company Number: None

PATIENT
  Sex: Male

DRUGS (1)
  1. OCREVUS [Suspect]
     Active Substance: OCRELIZUMAB

REACTIONS (9)
  - Abdominal pain upper [None]
  - Nausea [None]
  - Presyncope [None]
  - Quality of life decreased [None]
  - Decreased appetite [None]
  - Dyspnoea [None]
  - Anxiety [None]
  - Fatigue [None]
  - Dizziness [None]
